FAERS Safety Report 8427784-X (Version None)
Quarter: 2012Q2

REPORT INFORMATION
  Report Type: 
  Country: None (occurrence: None)
  Receive Date: 20120323
  Receipt Date: 20111129
  Transmission Date: 20120825
  Serious: Yes (Hospitalization)
  Sender: FDA-Public Use
  Company Number: 163-21880-11114110

PATIENT
  Age: 82 Year
  Sex: Male

DRUGS (2)
  1. DEXAMETHASONE [Suspect]
     Indication: MULTIPLE MYELOMA
     Dosage: 40 MG, Q MONDAY, PO : 40 MG, Q MONTH, PO
     Route: 048
     Dates: start: 20110708
  2. REVLIMID [Suspect]
     Indication: MULTIPLE MYELOMA
     Dosage: 5 MG, QD X 21 DAYS OF A 28 DAYS CYCLE, PO
     Route: 048
     Dates: start: 20110610

REACTIONS (1)
  - FEBRILE NEUTROPENIA [None]
